FAERS Safety Report 21447992 (Version 1)
Quarter: 2022Q4

REPORT INFORMATION
  Report Type: Spontaneous
  Country: US (occurrence: US)
  Receive Date: 20221012
  Receipt Date: 20221012
  Transmission Date: 20230113
  Serious: Yes (Hospitalization)
  Sender: FDA-Public Use
  Company Number: US-BRISTOL-MYERS SQUIBB COMPANY-2022-117424

PATIENT
  Age: 74 Year
  Sex: Male
  Weight: 74.38 kg

DRUGS (2)
  1. INREBIC [Suspect]
     Active Substance: FEDRATINIB HYDROCHLORIDE
     Indication: Myelofibrosis
     Route: 048
     Dates: start: 20191227
  2. INREBIC [Suspect]
     Active Substance: FEDRATINIB HYDROCHLORIDE

REACTIONS (1)
  - Adverse event [Unknown]
